FAERS Safety Report 7549063-5 (Version None)
Quarter: 2011Q2

REPORT INFORMATION
  Report Type: 
  Country: None (occurrence: None)
  Receive Date: 20110525
  Receipt Date: 20110131
  Transmission Date: 20111010
  Serious: No
  Sender: FDA-Public Use
  Company Number: 322937

PATIENT
  Age: 55 Year
  Sex: Female
  Weight: 95.2 kg

DRUGS (2)
  1. VICTOZA [Suspect]
     Indication: TYPE 2 DIABETES MELLITUS
     Dosage: SUBCUTANEOUS
     Route: 058
  2. VICTOZA [Suspect]
     Indication: DECREASED APPETITE
     Dosage: SUBCUTANEOUS
     Route: 058

REACTIONS (3)
  - DECREASED APPETITE [None]
  - ABDOMINAL PAIN UPPER [None]
  - WEIGHT DECREASED [None]
